FAERS Safety Report 6184223-X (Version None)
Quarter: 2009Q2

REPORT INFORMATION
  Report Type: 
  Country: None (occurrence: None)
  Receive Date: 20090508
  Receipt Date: 20090501
  Transmission Date: 20091009
  Serious: Yes (Hospitalization)
  Sender: FDA-Public Use
  Company Number: US-B.I. PHARMACEUTICALS,INC./RIDGEFIELD-2009-BP-05546PF

PATIENT
  Sex: Female
  Weight: 57.2 kg

DRUGS (8)
  1. SPIRIVA [Suspect]
     Indication: DYSPNOEA
     Dates: start: 20070701
  2. ZYVOX [Suspect]
     Indication: INFECTION
     Dates: start: 20071101, end: 20080401
  3. CIPROFLOXACIN [Concomitant]
  4. LEVOTHYROXINE SODIUM [Concomitant]
  5. PROZAC [Concomitant]
  6. FLUOXETINE HCL [Concomitant]
  7. ADVAIR HFA [Concomitant]
  8. XOPENEX [Concomitant]

REACTIONS (1)
  - FLUID RETENTION [None]
